FAERS Safety Report 6396194-1 (Version None)
Quarter: 2009Q4

REPORT INFORMATION
  Report Type: 
  Country: None (occurrence: None)
  Receive Date: 20091011
  Receipt Date: 20090929
  Transmission Date: 20100525
  Serious: Yes (Hospitalization, Other)
  Sender: FDA-Public Use
  Company Number: PHHY2009JP19031

PATIENT
  Sex: Male
  Weight: 35 kg

DRUGS (6)
  1. GLEEVEC [Interacting]
     Indication: CHRONIC MYELOID LEUKAEMIA
     Dosage: 200 MG DAILY
     Route: 048
     Dates: start: 20030710
  2. GLEEVEC [Interacting]
     Dosage: 200 MG DAILY
     Route: 048
     Dates: end: 20090625
  3. SEDIEL [Interacting]
     Indication: ANXIETY DISORDER
     Dosage: 30 MG DAILY
     Route: 048
     Dates: start: 20090416, end: 20090508
  4. TETRAMIDE [Interacting]
     Indication: ANXIETY DISORDER
     Dosage: 20 MG DAILY
     Route: 048
     Dates: start: 20090416, end: 20090508
  5. ATARAX [Suspect]
     Indication: ANXIETY DISORDER
     Dosage: 25 MG, DAILY
     Route: 048
     Dates: end: 20090508
  6. ATARAX [Suspect]
     Indication: ANXIETY
     Dosage: 25 MG DAILY
     Route: 042

REACTIONS (18)
  - ANXIETY [None]
  - ASPARTATE AMINOTRANSFERASE INCREASED [None]
  - BLOOD ALKALINE PHOSPHATASE INCREASED [None]
  - BLOOD CREATINE PHOSPHOKINASE INCREASED [None]
  - BLOOD LACTATE DEHYDROGENASE INCREASED [None]
  - CONVULSION [None]
  - DRUG INTERACTION [None]
  - DRUG LEVEL INCREASED [None]
  - HAEMATOCRIT DECREASED [None]
  - HAEMOGLOBIN DECREASED [None]
  - INSOMNIA [None]
  - INTERSTITIAL LUNG DISEASE [None]
  - LOGORRHOEA [None]
  - MUSCLE SPASMS [None]
  - NEUROLEPTIC MALIGNANT SYNDROME [None]
  - RED BLOOD CELL COUNT DECREASED [None]
  - RESTLESSNESS [None]
  - TREMOR [None]
